FAERS Safety Report 13386186 (Version 1)
Quarter: 2017Q1

REPORT INFORMATION
  Report Type: Spontaneous
  Country: US (occurrence: US)
  Receive Date: 20170330
  Receipt Date: 20170330
  Transmission Date: 20170429
  Serious: No
  Sender: FDA-Public Use
  Company Number: US-AUROBINDO-AUR-APU-2016-12088

PATIENT
  Sex: Male
  Weight: 81.63 kg

DRUGS (3)
  1. GABAPENTIN CAPSULES [Suspect]
     Active Substance: GABAPENTIN
     Indication: ANXIETY
     Dosage: 100 MG, 3 TIMES A DAY
     Route: 065
  2. GABAPENTIN CAPSULES [Suspect]
     Active Substance: GABAPENTIN
     Indication: PHANTOM PAIN
     Dosage: 300 MG, ONCE A DAY
     Route: 065
  3. GABAPENTIN CAPSULES [Suspect]
     Active Substance: GABAPENTIN
     Indication: DEPRESSION

REACTIONS (1)
  - Lactose intolerance [Not Recovered/Not Resolved]
